FAERS Safety Report 11300648 (Version 1)
Quarter: 2015Q3

REPORT INFORMATION
  Report Type: Spontaneous
  Country: US (occurrence: US)
  Receive Date: 20150722
  Receipt Date: 20150722
  Transmission Date: 20151125
  Serious: No
  Sender: FDA-Public Use
  Company Number: US-ELI_LILLY_AND_COMPANY-US201301007983

PATIENT
  Age: 79 Year

DRUGS (2)
  1. EVISTA [Suspect]
     Active Substance: RALOXIFENE HYDROCHLORIDE
     Indication: OSTEOPENIA
     Dosage: 60 MG, UNK
  2. FORTEO [Concomitant]
     Active Substance: TERIPARATIDE

REACTIONS (2)
  - Laboratory test abnormal [Unknown]
  - Fractured sacrum [Recovering/Resolving]

NARRATIVE: CASE EVENT DATE: 201211
